FAERS Safety Report 6140060-3 (Version None)
Quarter: 2009Q2

REPORT INFORMATION
  Report Type: 
  Country: None (occurrence: None)
  Receive Date: 20090401
  Receipt Date: 20090324
  Transmission Date: 20091009
  Serious: Yes (Other)
  Sender: FDA-Public Use
  Company Number: PHHY2009GR11099

PATIENT
  Age: 48 Year
  Sex: Male

DRUGS (2)
  1. ZOLEDRONIC ACID [Suspect]
     Dosage: 4 MG EVERY 4 WEEKS
     Dates: start: 20061201
  2. SUNITINIB MALATE [Concomitant]
     Dosage: UNK
     Dates: start: 20061201

REACTIONS (3)
  - GINGIVAL SWELLING [None]
  - OSTEONECROSIS [None]
  - PAIN IN JAW [None]
